FAERS Safety Report 5243187-3 (Version None)
Quarter: 2007Q1

REPORT INFORMATION
  Report Type: 
  Country: None (occurrence: None)
  Receive Date: 20070221
  Receipt Date: 20070209
  Transmission Date: 20070707
  Serious: Yes (Other)
  Sender: FDA-Public Use
  Company Number: FR-PFIZER INC-2007011794

PATIENT
  Sex: Female

DRUGS (2)
  1. REVATIO [Suspect]
  2. ILOPROST [Suspect]

REACTIONS (1)
  - HAEMORRHAGE [None]
